FAERS Safety Report 5328485-7 (Version None)
Quarter: 2007Q2

REPORT INFORMATION
  Report Type: 
  Country: None (occurrence: None)
  Receive Date: 20070518
  Receipt Date: 20070509
  Transmission Date: 20071010
  Serious: Yes (Hospitalization)
  Sender: FDA-Public Use
  Company Number: FR-ROCHE-484637

PATIENT
  Age: 68 Year
  Sex: Female
  Weight: 50 kg

DRUGS (8)
  1. BONIVA [Suspect]
     Indication: OSTEOPOROSIS
     Route: 048
     Dates: start: 20070203
  2. IMOVANE [Concomitant]
     Dosage: PRESCRIPTION AFTER THE EVENT ONSET: ZOPICLONE 7.5, ONE DOSE FORM IN THE EVENING.
  3. OMEPRAZOLE [Concomitant]
     Dosage: PRESCRIPTION AFTER EVENT ONSET: MOPRAL 20, ONE DOSE FORM IN EVENING
     Route: 048
  4. CALCIDOSE [Concomitant]
     Indication: OSTEOPOROSIS
     Dosage: PRESCRIPTION AFTER THE EVENT ONSET: ONE DOSE FORM IN THE MORNING.
     Route: 048
  5. ELISOR [Concomitant]
     Indication: MYOCARDIAL INFARCTION
     Dosage: PRESCRIPTION AFTER THE EVENT ONSET: 0.5 TABLET PER DAY.
     Route: 048
  6. PLAVIX [Concomitant]
     Indication: MYOCARDIAL INFARCTION
     Dosage: PRESCRIPTION AFTER THE EVENT ONSET: ONE DOSE PER DAY.
  7. TENORMIN [Concomitant]
     Indication: MYOCARDIAL INFARCTION
     Dosage: BEFORE EVENT ONSET: 0.25 TABLETS TWICE DAILY, AFTER EVENT ONSET: 0.50 TABLETS IN EVENING.
     Route: 048
  8. SPASFON-LYOC [Concomitant]

REACTIONS (2)
  - HYPOTENSION [None]
  - MALAISE [None]
